FAERS Safety Report 8207103-4 (Version None)
Quarter: 2012Q1

REPORT INFORMATION
  Report Type: 
  Country: None (occurrence: None)
  Receive Date: 20120314
  Receipt Date: 20120306
  Transmission Date: 20120608
  Serious: Yes (Hospitalization)
  Sender: FDA-Public Use
  Company Number: AU-UCBSA-051351

PATIENT
  Sex: Male

DRUGS (10)
  1. CIMZIA [Suspect]
     Indication: RHEUMATOID ARTHRITIS
     Dosage: 200 MG *2
     Route: 058
     Dates: start: 20120101, end: 20120115
  2. CLONAZEPAM [Concomitant]
     Indication: EPILEPSY
  3. METHOTREXATE [Concomitant]
     Indication: RHEUMATOID ARTHRITIS
  4. PREDNISOLONE [Concomitant]
     Indication: RHEUMATOID ARTHRITIS
     Route: 048
  5. PANTOPRAZOLE [Concomitant]
  6. AMLODIPINE [Concomitant]
  7. DAIFORMON [Concomitant]
     Indication: TYPE 2 DIABETES MELLITUS
  8. FOLIC ACID [Concomitant]
  9. ROSUVASTATIN [Concomitant]
  10. LANTUS [Concomitant]
     Indication: TYPE 2 DIABETES MELLITUS

REACTIONS (3)
  - BLOOD MAGNESIUM DECREASED [None]
  - DIZZINESS [None]
  - FEELING ABNORMAL [None]
